FAERS Safety Report 24226290 (Version 2)
Quarter: 2024Q3

REPORT INFORMATION
  Report Type: Spontaneous
  Country: PT (occurrence: PT)
  Receive Date: 20240820
  Receipt Date: 20240830
  Transmission Date: 20241017
  Serious: Yes (Other)
  Sender: BRISTOL MYERS SQUIBB
  Company Number: PT-BRISTOL-MYERS SQUIBB COMPANY-2024-129452

PATIENT
  Age: 70 Year
  Sex: Male

DRUGS (2)
  1. NIVOLUMAB [Suspect]
     Active Substance: NIVOLUMAB
     Indication: Metastatic renal cell carcinoma
  2. EDOXABAN [Concomitant]
     Active Substance: EDOXABAN
     Indication: Coagulopathy

REACTIONS (1)
  - Acquired haemophilia [Recovering/Resolving]
